FAERS Safety Report 16514258 (Version 1)
Quarter: 2019Q3

REPORT INFORMATION
  Report Type: Spontaneous
  Country: DE (occurrence: DE)
  Receive Date: 20190702
  Receipt Date: 20190702
  Transmission Date: 20191004
  Serious: Yes (Hospitalization)
  Sender: FDA-Public Use
  Company Number: DE-MYLANLABS-2019M1060453

PATIENT
  Age: 83 Year
  Sex: Female

DRUGS (2)
  1. ALENDRONATE [Suspect]
     Active Substance: ALENDRONATE SODIUM
     Indication: PRODUCT USED FOR UNKNOWN INDICATION
     Dosage: 70 MILLIGRAM DAILY
     Route: 048
  2. ALENDRONATE [Suspect]
     Active Substance: ALENDRONATE SODIUM
     Dosage: 1 DOSAGE FORM, QW
     Route: 048

REACTIONS (6)
  - Unresponsive to stimuli [Unknown]
  - Cardiac failure [Unknown]
  - General physical condition decreased [Unknown]
  - Incorrect dose administered [Unknown]
  - Wrong dose [Unknown]
  - Depressed level of consciousness [Unknown]
